FAERS Safety Report 20926870 (Version 68)
Quarter: 2025Q2

REPORT INFORMATION
  Report Type: Report from Study
  Country: CO (occurrence: CO)
  Receive Date: 20220607
  Receipt Date: 20250611
  Transmission Date: 20250717
  Serious: Yes (Life-Threatening, Other)
  Sender: TAKEDA
  Company Number: CO-TAKEDA-2021TUS042775

PATIENT
  Age: 36 Year
  Sex: Female
  Weight: 68 kg

DRUGS (23)
  1. LANADELUMAB [Suspect]
     Active Substance: LANADELUMAB
     Indication: Hereditary angioedema
     Dosage: 300 MILLIGRAM, Q4WEEKS
     Dates: start: 20140911
  2. LANADELUMAB [Suspect]
     Active Substance: LANADELUMAB
     Dosage: 1 DOSAGE FORM, MONTHLY
     Dates: start: 20141111
  3. LANADELUMAB [Suspect]
     Active Substance: LANADELUMAB
     Dosage: 300 MILLIGRAM, MONTHLY
     Dates: start: 20210618
  4. LANADELUMAB [Suspect]
     Active Substance: LANADELUMAB
     Dosage: 300 MILLIGRAM, Q2WEEKS
     Dates: start: 20210716
  5. LANADELUMAB [Suspect]
     Active Substance: LANADELUMAB
     Dosage: 300 MILLIGRAM, Q2WEEKS
  6. LANADELUMAB [Suspect]
     Active Substance: LANADELUMAB
     Dosage: 300 MILLIGRAM, Q2WEEKS
  7. LANADELUMAB [Suspect]
     Active Substance: LANADELUMAB
  8. LANADELUMAB [Suspect]
     Active Substance: LANADELUMAB
     Dosage: 1 DOSAGE FORM, MONTHLY
  9. LANADELUMAB [Suspect]
     Active Substance: LANADELUMAB
     Dosage: UNK UNK, Q4WEEKS
  10. LANADELUMAB [Suspect]
     Active Substance: LANADELUMAB
     Dosage: 300 MILLIGRAM, Q4WEEKS
  11. LANADELUMAB [Suspect]
     Active Substance: LANADELUMAB
  12. LANADELUMAB [Suspect]
     Active Substance: LANADELUMAB
  13. LANADELUMAB [Suspect]
     Active Substance: LANADELUMAB
     Dosage: 30 MILLIGRAM, MONTHLY
  14. LANADELUMAB [Suspect]
     Active Substance: LANADELUMAB
     Dosage: 300 MILLIGRAM, Q2WEEKS
  15. LANADELUMAB [Suspect]
     Active Substance: LANADELUMAB
     Dosage: 300 MILLIGRAM, MONTHLY
  16. FIRAZYR [Suspect]
     Active Substance: ICATIBANT ACETATE
     Indication: Hereditary angioedema
  17. FIRAZYR [Suspect]
     Active Substance: ICATIBANT ACETATE
  18. FIRAZYR [Suspect]
     Active Substance: ICATIBANT ACETATE
  19. FIRAZYR [Suspect]
     Active Substance: ICATIBANT ACETATE
  20. FIRAZYR [Suspect]
     Active Substance: ICATIBANT ACETATE
  21. FIRAZYR [Suspect]
     Active Substance: ICATIBANT ACETATE
  22. TRAMADOL [Suspect]
     Active Substance: TRAMADOL
     Indication: Product used for unknown indication
  23. LEVOTHYROXINE [Concomitant]
     Active Substance: LEVOTHYROXINE
     Indication: Hypothyroidism

REACTIONS (59)
  - Hereditary angioedema [Recovered/Resolved]
  - Nephrolithiasis [Recovered/Resolved]
  - Infusion related reaction [Recovered/Resolved]
  - Malaise [Recovered/Resolved]
  - Administration site pain [Recovering/Resolving]
  - Intentional product use issue [Unknown]
  - Wrong technique in product usage process [Recovering/Resolving]
  - Product prescribing error [Unknown]
  - Inappropriate schedule of product administration [Unknown]
  - Wrong dosage formulation [Unknown]
  - Discomfort [Recovered/Resolved]
  - Application site pain [Recovered/Resolved]
  - Premenstrual pain [Recovered/Resolved]
  - Gait inability [Recovered/Resolved]
  - Dysmenorrhoea [Recovered/Resolved]
  - Renal pain [Recovered/Resolved]
  - Insomnia [Recovered/Resolved]
  - Renal cyst [Recovered/Resolved]
  - Fatigue [Unknown]
  - Goitre [Unknown]
  - Stress [Unknown]
  - Weight increased [Unknown]
  - Body height decreased [Unknown]
  - Coccydynia [Unknown]
  - Viral infection [Unknown]
  - Discouragement [Unknown]
  - Drug hypersensitivity [Unknown]
  - Application site pruritus [Unknown]
  - Back injury [Unknown]
  - Fall [Unknown]
  - Insurance issue [Unknown]
  - Treatment noncompliance [Unknown]
  - Chemical burn [Unknown]
  - Anxiety [Unknown]
  - Emotional distress [Unknown]
  - Depressed mood [Not Recovered/Not Resolved]
  - Abdominal pain [Unknown]
  - Muscle spasms [Recovered/Resolved]
  - Urinary tract infection [Recovering/Resolving]
  - Mastication disorder [Unknown]
  - Swelling [Unknown]
  - Incorrect dose administered [Unknown]
  - Ear inflammation [Recovered/Resolved]
  - Syringe issue [Recovered/Resolved]
  - Gait disturbance [Unknown]
  - Feeling abnormal [Unknown]
  - Loss of personal independence in daily activities [Unknown]
  - Body height increased [Unknown]
  - Headache [Recovered/Resolved]
  - Back pain [Unknown]
  - Product dose omission issue [Recovering/Resolving]
  - Nausea [Not Recovered/Not Resolved]
  - Pain [Recovered/Resolved]
  - Influenza [Recovered/Resolved]
  - Weight decreased [Unknown]
  - Cough [Not Recovered/Not Resolved]
  - Administration site inflammation [Recovered/Resolved]
  - Dysuria [Not Recovered/Not Resolved]
  - Dizziness [Recovering/Resolving]

NARRATIVE: CASE EVENT DATE: 20210709
